FAERS Safety Report 16817378 (Version 2)
Quarter: 2019Q3

REPORT INFORMATION
  Report Type: Spontaneous
  Country: AU (occurrence: AU)
  Receive Date: 20190917
  Receipt Date: 20190923
  Transmission Date: 20191005
  Serious: Yes (Other)
  Sender: FDA-Public Use
  Company Number: AU-ASTRAZENECA-2019SF30127

PATIENT
  Sex: Male

DRUGS (2)
  1. MOXETUMOMAB [Suspect]
     Active Substance: MOXETUMOMAB PASUDOTOX
     Route: 042
     Dates: start: 20190910
  2. ECULIZUMAB [Concomitant]
     Active Substance: ECULIZUMAB

REACTIONS (2)
  - Haemolytic uraemic syndrome [Unknown]
  - Cytokine release syndrome [Unknown]
